FAERS Safety Report 7823120-8 (Version None)
Quarter: 2011Q4

REPORT INFORMATION
  Report Type: 
  Country: None (occurrence: None)
  Receive Date: 20111019
  Receipt Date: 20111010
  Transmission Date: 20120403
  Serious: Yes (Hospitalization)
  Sender: FDA-Public Use
  Company Number: US-BIOGENIDEC-2011BI031624

PATIENT
  Age: 53 Year
  Sex: Female

DRUGS (1)
  1. AVONEX [Suspect]
     Indication: MULTIPLE SCLEROSIS
     Route: 030
     Dates: start: 20110107, end: 20110801

REACTIONS (5)
  - MULTIPLE SCLEROSIS [None]
  - THYROID DISORDER [None]
  - HYPERSOMNIA [None]
  - PYREXIA [None]
  - CEREBROVASCULAR ACCIDENT [None]
